FAERS Safety Report 8232076-8 (Version None)
Quarter: 2012Q1

REPORT INFORMATION
  Report Type: 
  Country: None (occurrence: None)
  Receive Date: 20120323
  Receipt Date: 20120321
  Transmission Date: 20120608
  Serious: Yes (Death, Other)
  Sender: FDA-Public Use
  Company Number: PHHY2011US60885

PATIENT
  Sex: Female
  Weight: 47.619 kg

DRUGS (7)
  1. MEGACE [Concomitant]
     Dosage: UNK UKN, OT
  2. PRAVACHOL [Concomitant]
     Dosage: UNK UKN, OT
  3. BERICAT [Concomitant]
     Dosage: UNK UKN, OT
  4. AMBIEN [Concomitant]
     Dosage: UNK UKN, OT
  5. GILENYA [Suspect]
     Indication: MULTIPLE SCLEROSIS
     Dosage: 0.5 MG, DAILY
     Route: 048
     Dates: start: 20101004
  6. MOBIC [Concomitant]
     Dosage: UNK UKN, OT
  7. SAMD [Concomitant]
     Dosage: UNK UKN, OT

REACTIONS (4)
  - CENTRAL NERVOUS SYSTEM LESION [None]
  - MUSCULAR WEAKNESS [None]
  - DROWNING [None]
  - HEMIPARESIS [None]
